FAERS Safety Report 9674862 (Version 1)
Quarter: 2013Q4

REPORT INFORMATION
  Report Type: Report from Study
  Country: NL (occurrence: NL)
  Receive Date: 20131107
  Receipt Date: 20131107
  Transmission Date: 20140711
  Serious: Yes (Other)
  Sender: FDA-Public Use
  Company Number: PHHY2013NL125793

PATIENT
  Sex: Male

DRUGS (4)
  1. ZOMETA [Suspect]
     Indication: PROSTATE CANCER METASTATIC
     Dosage: 4 MG/ 100ML, ONCE EVERY 4 WEEKS
     Route: 042
  2. ZOMETA [Suspect]
     Dosage: 4 MG/ 100ML, ONCE EVERY 4 WEEKS
     Route: 042
     Dates: start: 20120924
  3. ZOMETA [Suspect]
     Dosage: 4 MG/ 100ML, ONCE EVERY 4 WEEKS
     Route: 042
     Dates: start: 20131030
  4. ZOMETA [Suspect]
     Dosage: 4 MG/ 100ML, ONCE EVERY 4 WEEKS
     Route: 042
     Dates: start: 20131104

REACTIONS (1)
  - Terminal state [Unknown]
